FAERS Safety Report 6138434-X (Version None)
Quarter: 2009Q1

REPORT INFORMATION
  Report Type: 
  Country: None (occurrence: None)
  Receive Date: 20090331
  Receipt Date: 20090327
  Transmission Date: 20090719
  Serious: Yes (Death)
  Sender: FDA-Public Use
  Company Number: PHHY2009JP09946

PATIENT
  Age: 49 Year
  Sex: Male

DRUGS (5)
  1. CYCLOSPORINE [Suspect]
     Indication: WEGENER'S GRANULOMATOSIS
     Dosage: UNK
     Dates: start: 20040101
  2. PREDNISOLONE [Concomitant]
     Indication: WEGENER'S GRANULOMATOSIS
     Dosage: UNK
  3. PREDNISOLONE [Concomitant]
     Dosage: UNK
     Dates: start: 19950101
  4. ITRACONAZOLE [Concomitant]
     Indication: ASPERGILLOSIS
     Dosage: UNK
     Dates: start: 20030101
  5. VORICONAZOLE [Concomitant]

REACTIONS (3)
  - DEATH [None]
  - LUNG CYST [None]
  - LUNG DISORDER [None]
